FAERS Safety Report 6577564-5 (Version None)
Quarter: 2010Q1

REPORT INFORMATION
  Report Type: 
  Country: None (occurrence: None)
  Receive Date: 20100211
  Receipt Date: 20100203
  Transmission Date: 20100710
  Serious: Yes (Hospitalization)
  Sender: FDA-Public Use
  Company Number: JP-ASTRAZENECA-2010SE05879

PATIENT
  Age: 77 Year
  Sex: Female

DRUGS (11)
  1. BLOPRESS [Suspect]
     Indication: HYPERTENSION
     Route: 048
     Dates: start: 20090826, end: 20091225
  2. MEXITIL [Suspect]
     Route: 048
     Dates: start: 20090826, end: 20091225
  3. ACTOS [Concomitant]
     Route: 048
  4. STARSIS [Concomitant]
     Route: 048
  5. SUNRYTHM [Concomitant]
     Route: 065
  6. MELBIN [Concomitant]
     Route: 048
  7. GASTER [Concomitant]
     Route: 065
  8. CETAPRIL [Concomitant]
     Route: 048
  9. LIPITOR [Concomitant]
     Route: 048
  10. MAINTATE [Concomitant]
     Route: 048
  11. MERISLON [Concomitant]
     Route: 048

REACTIONS (2)
  - GASTROINTESTINAL HAEMORRHAGE [None]
  - THROMBOCYTOPENIA [None]
